FAERS Safety Report 6122541-1 (Version None)
Quarter: 2009Q1

REPORT INFORMATION
  Report Type: 
  Country: None (occurrence: None)
  Receive Date: 20090318
  Receipt Date: 20090114
  Transmission Date: 20090719
  Serious: No
  Sender: FDA-Public Use
  Company Number: US-ASTRAZENECA-2009UW01122

PATIENT
  Age: 73 Year
  Sex: Male

DRUGS (2)
  1. SYMBICORT [Suspect]
     Indication: BRONCHITIS CHRONIC
     Dosage: 160/4.5 MCG, 2 PUFFS TWICE DAILY
     Route: 055
     Dates: start: 20080514
  2. ZANTAC [Concomitant]

REACTIONS (1)
  - ALOPECIA [None]
